FAERS Safety Report 14529012 (Version 1)
Quarter: 2018Q1

REPORT INFORMATION
  Report Type: Spontaneous
  Country: US (occurrence: US)
  Receive Date: 20180214
  Receipt Date: 20180214
  Transmission Date: 20180509
  Serious: Yes (Other)
  Sender: FDA-Public Use
  Company Number: US-PFIZER INC-2018059993

PATIENT
  Age: 63 Year
  Sex: Female

DRUGS (1)
  1. IBRANCE [Suspect]
     Active Substance: PALBOCICLIB
     Indication: BREAST CANCER METASTATIC
     Dosage: 100 MG, UNK
     Dates: start: 201612, end: 201801

REACTIONS (8)
  - Arthralgia [Unknown]
  - Neutropenia [Unknown]
  - Lung disorder [Unknown]
  - Sepsis [Unknown]
  - Alopecia [Unknown]
  - Hair growth abnormal [Unknown]
  - Cellulitis [Unknown]
  - Pruritus [Unknown]
